FAERS Safety Report 9993767 (Version 1)
Quarter: 2014Q1

REPORT INFORMATION
  Report Type: Spontaneous
  Country: US (occurrence: US)
  Receive Date: 20140310
  Receipt Date: 20140310
  Transmission Date: 20141002
  Serious: Yes (Disabling)
  Sender: FDA-Public Use
  Company Number: US-009507513-1403USA002554

PATIENT
  Sex: Male

DRUGS (2)
  1. ISENTRESS [Suspect]
     Dosage: UNK
     Route: 048
     Dates: end: 201401
  2. TRUVADA [Concomitant]
     Dosage: UNK
     Dates: end: 201312

REACTIONS (9)
  - Depression [Not Recovered/Not Resolved]
  - Haemorrhoid operation [Not Recovered/Not Resolved]
  - Malaise [Not Recovered/Not Resolved]
  - Fatigue [Not Recovered/Not Resolved]
  - Decreased appetite [Not Recovered/Not Resolved]
  - Pyrexia [Not Recovered/Not Resolved]
  - Polypectomy [Not Recovered/Not Resolved]
  - Polyp [Not Recovered/Not Resolved]
  - Haemorrhoids [Not Recovered/Not Resolved]
